FAERS Safety Report 18117809 (Version 1)
Quarter: 2020Q3

REPORT INFORMATION
  Report Type: Report from Study
  Country: BR (occurrence: BR)
  Receive Date: 20200806
  Receipt Date: 20200806
  Transmission Date: 20201103
  Serious: Yes (Hospitalization)
  Sender: FDA-Public Use
  Company Number: BR-AMGEN-BRASL2020122576

PATIENT
  Age: 72 Year
  Sex: Female

DRUGS (9)
  1. OMEPRAZOLE. [Concomitant]
     Active Substance: OMEPRAZOLE
     Dosage: 20 MILLIGRAM
  2. DEXAMETHASONE. [Concomitant]
     Active Substance: DEXAMETHASONE
     Dosage: 4 MILLIGRAM
  3. SCOPOLAMINE AMINOXIDE [Concomitant]
     Active Substance: SCOPOLAMINE N-OXIDE
     Dosage: 10 MILLIGRAM
  4. DIMETHICONE. [Concomitant]
     Active Substance: DIMETHICONE
     Dosage: UNK
  5. BROMOPRIDE [Concomitant]
     Active Substance: BROMOPRIDE
     Dosage: 10 MILLIGRAM
  6. NYSTATIN. [Concomitant]
     Active Substance: NYSTATIN
     Dosage: UNK
  7. VECTIBIX [Suspect]
     Active Substance: PANITUMUMAB
     Indication: RECTAL CANCER METASTATIC
     Dosage: UNK (EVERY 15 DAYS)
     Route: 065
     Dates: start: 20200618
  8. CITALOPRAM [Concomitant]
     Active Substance: CITALOPRAM HYDROBROMIDE
  9. DIPYRONE [Concomitant]
     Active Substance: DIPYRONE
     Indication: PAIN
     Dosage: UNK UNK, AS NECESSARY

REACTIONS (6)
  - Skin discolouration [Recovering/Resolving]
  - Anxiety [Recovering/Resolving]
  - Tongue discolouration [Recovering/Resolving]
  - Blood glucose increased [Unknown]
  - Acne [Recovering/Resolving]
  - Motion sickness [Recovering/Resolving]

NARRATIVE: CASE EVENT DATE: 2020
